FAERS Safety Report 13193887 (Version 2)
Quarter: 2017Q1

REPORT INFORMATION
  Report Type: Report from Study
  Country: None (occurrence: CA)
  Receive Date: 20170207
  Receipt Date: 20170228
  Transmission Date: 20170428
  Serious: Yes (Death)
  Sender: FDA-Public Use
  Company Number: CA-ABBVIE-17K-028-1863629-00

PATIENT
  Age: 28 Year
  Sex: Male

DRUGS (1)
  1. HUMIRA [Suspect]
     Active Substance: ADALIMUMAB
     Indication: CROHN^S DISEASE
     Route: 058
     Dates: start: 20170121

REACTIONS (4)
  - Tachycardia [Unknown]
  - Pyrexia [Unknown]
  - Diarrhoea [Unknown]
  - Post procedural complication [Fatal]

NARRATIVE: CASE EVENT DATE: 201701
